FAERS Safety Report 6266283-0 (Version None)
Quarter: 2009Q3

REPORT INFORMATION
  Report Type: 
  Country: None (occurrence: None)
  Receive Date: 20090709
  Receipt Date: 20090629
  Transmission Date: 20100115
  Serious: Yes (Other)
  Sender: FDA-Public Use
  Company Number: JPI-P-007740

PATIENT
  Age: 26 Year
  Sex: Male
  Weight: 77.1115 kg

DRUGS (4)
  1. XYREM [Suspect]
     Indication: NARCOLEPSY
     Dosage: ORAL; 7.5 GM (3.75 GM, 2 IN 1 D), ORAL
     Route: 048
     Dates: end: 20090625
  2. XYREM [Suspect]
     Indication: NARCOLEPSY
     Dosage: ORAL; 7.5 GM (3.75 GM, 2 IN 1 D), ORAL
     Route: 048
     Dates: start: 20070308
  3. MODAFINIL [Concomitant]
  4. METHYLPHENIDATE HCL [Concomitant]

REACTIONS (4)
  - CEREBRAL DISORDER [None]
  - GRAND MAL CONVULSION [None]
  - HYPOAESTHESIA [None]
  - UNRESPONSIVE TO STIMULI [None]
